FAERS Safety Report 4584672-7 (Version None)
Quarter: 2005Q1

REPORT INFORMATION
  Report Type: 
  Country: None (occurrence: None)
  Receive Date: 20050125
  Receipt Date: 20040916
  Transmission Date: 20050727
  Serious: No
  Sender: FDA-Public Use
  Company Number: USA040978392

PATIENT
  Age: 66 Year
  Sex: Female
  Weight: 53 kg

DRUGS (5)
  1. FORTEO [Suspect]
     Indication: OSTEOPOROSIS
     Dosage: 20 UG/1 DAY
     Dates: start: 20040301, end: 20040913
  2. PREDNISONE TAB [Concomitant]
  3. TIMOPTIC [Concomitant]
  4. CALCIUM GLUCONATE [Concomitant]
  5. MULTI-VITAMIN [Concomitant]

REACTIONS (7)
  - ASTHENIA [None]
  - CHEST PAIN [None]
  - DYSPHAGIA [None]
  - DYSPNOEA [None]
  - INJECTION SITE HAEMORRHAGE [None]
  - INJECTION SITE MASS [None]
  - WEIGHT DECREASED [None]
